FAERS Safety Report 16561572 (Version 1)
Quarter: 2019Q3

REPORT INFORMATION
  Report Type: Spontaneous
  Country: US (occurrence: US)
  Receive Date: 20190711
  Receipt Date: 20190711
  Transmission Date: 20191004
  Serious: No
  Sender: FDA-Public Use
  Company Number: US-EPIC PHARMA LLC-2019EPC00136

PATIENT
  Age: 1 Year
  Sex: Female
  Weight: 9.52 kg

DRUGS (2)
  1. AZITHROMYCIN ANHYDROUS. [Suspect]
     Active Substance: AZITHROMYCIN ANHYDROUS
     Indication: EAR INFECTION
     Dosage: 5 ML, ONCE
     Route: 048
     Dates: start: 20190516, end: 20190516
  2. AZITHROMYCIN ANHYDROUS. [Suspect]
     Active Substance: AZITHROMYCIN ANHYDROUS
     Dosage: 2.5 ML, 1X/DAY
     Route: 048
     Dates: start: 20190517, end: 20190517

REACTIONS (3)
  - Productive cough [Unknown]
  - Rhinorrhoea [Not Recovered/Not Resolved]
  - Product contamination physical [Recovered/Resolved]

NARRATIVE: CASE EVENT DATE: 20190516
